FAERS Safety Report 7648642-4 (Version None)
Quarter: 2011Q3

REPORT INFORMATION
  Report Type: 
  Country: None (occurrence: None)
  Receive Date: 20110801
  Receipt Date: 20110720
  Transmission Date: 20111222
  Serious: Yes (Other)
  Sender: FDA-Public Use
  Company Number: PHHY2011PL65973

PATIENT
  Age: 72 Year
  Sex: Female

DRUGS (2)
  1. AFINITOR [Suspect]
     Dosage: UNK UKN, UNK
     Dates: start: 20101201
  2. AFINITOR [Suspect]
     Dosage: UNK UKN, UNK
     Dates: end: 20110101

REACTIONS (5)
  - DIARRHOEA [None]
  - PYREXIA [None]
  - DIABETES MELLITUS [None]
  - ARRHYTHMIA [None]
  - DRUG INTOLERANCE [None]
